FAERS Safety Report 15929020 (Version 1)
Quarter: 2019Q1

REPORT INFORMATION
  Report Type: Spontaneous
  Country: US (occurrence: US)
  Receive Date: 20190206
  Receipt Date: 20190206
  Transmission Date: 20190417
  Serious: Yes (Other)
  Sender: FDA-Public Use
  Company Number: US-BAYER-2019-025543

PATIENT
  Age: 49 Year
  Sex: Female
  Weight: 81.63 kg

DRUGS (1)
  1. AFRIN ORIGINAL [Suspect]
     Active Substance: OXYMETAZOLINE HYDROCHLORIDE
     Indication: DYSPNOEA
     Dosage: 2 DF(IN EACH NOSTRIL)
     Route: 055
     Dates: start: 201901

REACTIONS (3)
  - Poor quality product administered [Unknown]
  - Product contamination microbial [Unknown]
  - Product use in unapproved indication [Unknown]
